FAERS Safety Report 20362058 (Version 1)
Quarter: 2022Q1

REPORT INFORMATION
  Report Type: Spontaneous
  Country: JP (occurrence: JP)
  Receive Date: 20220121
  Receipt Date: 20220121
  Transmission Date: 20220423
  Serious: Yes (Other)
  Sender: FDA-Public Use
  Company Number: JP-PFIZER INC-202200064965

PATIENT
  Sex: Male

DRUGS (1)
  1. LYRICA [Suspect]
     Active Substance: PREGABALIN
     Dosage: 50 MG IN THE MORNING, 75 MG IN THE EVENING
     Route: 048

REACTIONS (2)
  - Renal function test abnormal [Not Recovered/Not Resolved]
  - Weight increased [Not Recovered/Not Resolved]
